FAERS Safety Report 15527105 (Version 1)
Quarter: 2018Q4

REPORT INFORMATION
  Report Type: Spontaneous
  Country: US (occurrence: US)
  Receive Date: 20181018
  Receipt Date: 20181018
  Transmission Date: 20190205
  Serious: No
  Sender: FDA-Public Use
  Company Number: US-ROMARKLABS-2018-US-000090

PATIENT
  Age: 21 Year
  Sex: Male

DRUGS (3)
  1. PROBIOTIC, UNSPECIFIED [Concomitant]
     Indication: LYME DISEASE
     Route: 048
  2. ALINIA [Suspect]
     Active Substance: NITAZOXANIDE
     Indication: LYME DISEASE
     Dosage: 1 TABLET TWICE DAILY FOR WEEKS
     Route: 048
     Dates: start: 2017, end: 2017
  3. HERBS AND SUPPLEMENTS, UNSPECIFIED [Concomitant]
     Indication: LYME DISEASE
     Route: 048

REACTIONS (4)
  - Malabsorption [Not Recovered/Not Resolved]
  - Constipation [Not Recovered/Not Resolved]
  - Gastrointestinal hypomotility [Not Recovered/Not Resolved]
  - Weight decreased [Not Recovered/Not Resolved]

NARRATIVE: CASE EVENT DATE: 2017
